FAERS Safety Report 10910053 (Version 1)
Quarter: 2015Q1

REPORT INFORMATION
  Report Type: Spontaneous
  Country: US (occurrence: US)
  Receive Date: 20150312
  Receipt Date: 20150312
  Transmission Date: 20150721
  Serious: No
  Sender: FDA-Public Use
  Company Number: US-SA-2014SA105719

PATIENT
  Age: 52 Year
  Sex: Male

DRUGS (1)
  1. NASACORT ALLERGY 24HR [Suspect]
     Active Substance: TRIAMCINOLONE ACETONIDE
     Indication: HYPERSENSITIVITY
     Dosage: 1 SPRAY/NOSTRIL DOSE:2 UNIT(S)
     Route: 045
     Dates: start: 201403, end: 20140801

REACTIONS (3)
  - Urine flow decreased [Unknown]
  - Dysuria [Unknown]
  - Underdose [Unknown]
